FAERS Safety Report 14288933 (Version 1)
Quarter: 2017Q4

REPORT INFORMATION
  Report Type: Report from Study
  Country: TW (occurrence: TW)
  Receive Date: 20171215
  Receipt Date: 20171215
  Transmission Date: 20180321
  Serious: Yes (Life-Threatening, Other)
  Sender: FDA-Public Use
  Company Number: TW-ACCORD-050858

PATIENT
  Age: 45 Year
  Sex: Male

DRUGS (4)
  1. FLUOROURACIL. [Suspect]
     Active Substance: FLUOROURACIL
     Indication: COLORECTAL CANCER METASTATIC
     Dosage: DOSE: 2400 MG/M^2.?OVER A 46-HOUR PERIOD
     Route: 040
  2. FOLINIC ACID [Suspect]
     Active Substance: LEUCOVORIN
     Indication: COLORECTAL CANCER METASTATIC
  3. BEVACIZUMAB. [Suspect]
     Active Substance: BEVACIZUMAB
     Indication: COLORECTAL CANCER METASTATIC
     Dosage: REPEATED EVERY 2 WEEKS
     Route: 041
  4. IRINOTECAN [Suspect]
     Active Substance: IRINOTECAN
     Indication: COLORECTAL CANCER METASTATIC
     Dosage: OVER 2 H ON DAY 1.?ALSO RECEIVED AT DOSE: 150 MG/M^2 1 CYCLICAL, 180 MG/M^2 6 CYCLICAL

REACTIONS (3)
  - Fatigue [Unknown]
  - Stomatitis [Unknown]
  - Leukopenia [Unknown]
